FAERS Safety Report 16527373 (Version 1)
Quarter: 2019Q3

REPORT INFORMATION
  Report Type: Spontaneous
  Country: FR (occurrence: FR)
  Receive Date: 20190704
  Receipt Date: 20190704
  Transmission Date: 20191004
  Serious: Yes (Other)
  Sender: FDA-Public Use
  Company Number: FR-ALVOGEN-2019-ALVOGEN-098710

PATIENT

DRUGS (6)
  1. ONDANSETRON [Interacting]
     Active Substance: ONDANSETRON
     Indication: PROPHYLAXIS
     Route: 064
  2. DEXAMETHASONE. [Concomitant]
     Active Substance: DEXAMETHASONE
     Indication: VOMITING
     Route: 064
  3. DOXORUBICIN [Suspect]
     Active Substance: DOXORUBICIN
     Indication: NON-HODGKIN^S LYMPHOMA STAGE II
     Dosage: AT DAY 1 AND 15 OF A 28-DAY CYCLE, CYCLICAL
     Route: 064
  4. DACARBAZINE. [Suspect]
     Active Substance: DACARBAZINE
     Indication: NON-HODGKIN^S LYMPHOMA STAGE II
     Dosage: AT DAY 1 AND 15 OF A 28-DAY CYCLE, CYCLICAL
     Route: 064
  5. BLEOMYCIN [Suspect]
     Active Substance: BLEOMYCIN SULFATE
     Indication: NON-HODGKIN^S LYMPHOMA STAGE II
     Dosage: AT DAY 1 AND 15 OF A 28-DAY CYCLE, CYCLICAL
     Route: 064
  6. VINBLASTINE [Suspect]
     Active Substance: VINBLASTINE
     Indication: NON-HODGKIN^S LYMPHOMA STAGE II
     Dosage: AT DAY 1 AND 15 OF A 28-DAY CYCLE, CYCLICAL
     Route: 064

REACTIONS (4)
  - Foetal exposure during pregnancy [Recovered/Resolved]
  - Cardiotoxicity [Recovered/Resolved]
  - Drug interaction [Recovered/Resolved]
  - Cardiac dysfunction [Recovered/Resolved]
